FAERS Safety Report 6686274-5 (Version None)
Quarter: 2010Q2

REPORT INFORMATION
  Report Type: 
  Country: None (occurrence: None)
  Receive Date: 20100414
  Receipt Date: 20100329
  Transmission Date: 20101027
  Serious: Yes (Other)
  Sender: FDA-Public Use
  Company Number: AVE_01722_2010

PATIENT
  Sex: Female

DRUGS (1)
  1. CLONODINE HYDROCHLORIDE [Suspect]
     Indication: HYPERTENSION
     Dosage: 0.1 MG QD, VIA 1/WEEKLY PATCH TRANSDERMAL
     Route: 062
     Dates: start: 20100227

REACTIONS (4)
  - DRUG INEFFECTIVE [None]
  - FEELING ABNORMAL [None]
  - HYPERTENSIVE CRISIS [None]
  - PRODUCT ADHESION ISSUE [None]
